FAERS Safety Report 24017481 (Version 6)
Quarter: 2024Q3

REPORT INFORMATION
  Report Type: Spontaneous
  Country: US (occurrence: US)
  Receive Date: 20240627
  Receipt Date: 20240722
  Transmission Date: 20241016
  Serious: No
  Sender: ROCHE
  Company Number: US-ROCHE-10000006951

PATIENT
  Sex: Female
  Weight: 61.235 kg

DRUGS (2)
  1. XOLAIR [Suspect]
     Active Substance: OMALIZUMAB
     Indication: Idiopathic urticaria
     Route: 058
     Dates: start: 20200805
  2. XOLAIR [Suspect]
     Active Substance: OMALIZUMAB

REACTIONS (6)
  - Off label use [Unknown]
  - No adverse event [Unknown]
  - Product dose omission issue [Unknown]
  - Accidental exposure to product [Unknown]
  - Device defective [Unknown]
  - Syringe issue [Unknown]
